FAERS Safety Report 4836504-7 (Version None)
Quarter: 2005Q4

REPORT INFORMATION
  Report Type: 
  Country: None (occurrence: None)
  Receive Date: 20051123
  Receipt Date: 20051114
  Transmission Date: 20060501
  Serious: Yes (Other)
  Sender: FDA-Public Use
  Company Number: US-GLAXOSMITHKLINE-A0583156A

PATIENT
  Sex: Female

DRUGS (2)
  1. ESKALITH [Suspect]
     Route: 048
     Dates: start: 19900101
  2. NO CONCURRENT MEDICATION [Concomitant]

REACTIONS (1)
  - MANIA [None]
